FAERS Safety Report 8353380-9 (Version None)
Quarter: 2012Q2

REPORT INFORMATION
  Report Type: 
  Country: None (occurrence: None)
  Receive Date: 20120511
  Receipt Date: 20120508
  Transmission Date: 20120825
  Serious: No
  Sender: FDA-Public Use
  Company Number: US-PFIZER INC-2012112589

PATIENT
  Sex: Male
  Weight: 90.7 kg

DRUGS (2)
  1. PROTONIX [Suspect]
     Indication: LUNG INFECTION
     Dosage: 40 MG, DAILY
     Dates: start: 20120301, end: 20120101
  2. PROTONIX [Suspect]
     Indication: OFF LABEL USE

REACTIONS (1)
  - THERAPEUTIC RESPONSE UNEXPECTED [None]
